FAERS Safety Report 10012908 (Version 1)
Quarter: 2014Q1

REPORT INFORMATION
  Report Type: Spontaneous
  Country: DE (occurrence: ZA)
  Receive Date: 20140314
  Receipt Date: 20140314
  Transmission Date: 20141002
  Serious: Yes (Death)
  Sender: FDA-Public Use
  Company Number: DE-009507513-1403ZAF005813

PATIENT
  Sex: 0

DRUGS (1)
  1. CANCIDAS 50MG [Suspect]

REACTIONS (1)
  - Death [Fatal]
